FAERS Safety Report 21203350 (Version 5)
Quarter: 2023Q1

REPORT INFORMATION
  Report Type: Report from Study
  Country: US (occurrence: US)
  Receive Date: 20220811
  Receipt Date: 20230330
  Transmission Date: 20230417
  Serious: No
  Sender: FDA-Public Use
  Company Number: US-NOVARTISTESTPH-NVSC2022US181735

PATIENT
  Sex: Female

DRUGS (2)
  1. COSENTYX [Suspect]
     Active Substance: SECUKINUMAB
     Indication: Psoriasis
     Dosage: UNK
     Route: 065
  2. COSENTYX [Suspect]
     Active Substance: SECUKINUMAB
     Dosage: 300 MG, WEEK 0, 1, 2, 3, 4 AND THEN EVERY 4 WEEKS THEREAFTER
     Route: 058

REACTIONS (5)
  - Alopecia [Unknown]
  - Pyrexia [Unknown]
  - Oropharyngeal pain [Unknown]
  - Psoriasis [Unknown]
  - Pruritus [Unknown]
